FAERS Safety Report 9278104 (Version 2)
Quarter: 2013Q4

REPORT INFORMATION
  Report Type: Spontaneous
  Country: US (occurrence: None)
  Receive Date: 20121210
  Receipt Date: 20131021
  Transmission Date: 20140711
  Serious: Yes (Other)
  Sender: FDA-Public Use
  Company Number: 1211-701

PATIENT
  Sex: 0

DRUGS (1)
  1. EYLEA(AFLIBERCEPT)(INJECTION)(AFLIBERCEPT) [Suspect]

REACTIONS (2)
  - Vitreous haemorrhage [None]
  - Endophthalmitis [None]
